FAERS Safety Report 12740854 (Version 2)
Quarter: 2017Q3

REPORT INFORMATION
  Report Type: Spontaneous
  Country: US (occurrence: US)
  Receive Date: 20160914
  Receipt Date: 20170821
  Transmission Date: 20171127
  Serious: Yes (Other)
  Sender: FDA-Public Use
  Company Number: US-TEVA-667996USA

PATIENT
  Sex: Male
  Weight: 86.26 kg

DRUGS (2)
  1. ZOLPIDEM TARTRATE. [Suspect]
     Active Substance: ZOLPIDEM TARTRATE
     Dosage: 10 MILLIGRAM DAILY;
     Dates: start: 20160317
  2. FLUOXETINE [Suspect]
     Active Substance: FLUOXETINE HYDROCHLORIDE
     Indication: DEPRESSION
     Dosage: 20 MILLIGRAM DAILY;
     Dates: start: 20160317

REACTIONS (6)
  - Suicidal ideation [Unknown]
  - Fear [Not Recovered/Not Resolved]
  - Abnormal behaviour [Not Recovered/Not Resolved]
  - Sexually inappropriate behaviour [Not Recovered/Not Resolved]
  - Mania [Not Recovered/Not Resolved]
  - Mental disorder [Not Recovered/Not Resolved]
